FAERS Safety Report 7338988-1 (Version None)
Quarter: 2011Q1

REPORT INFORMATION
  Report Type: 
  Country: None (occurrence: None)
  Receive Date: 20110308
  Receipt Date: 20110228
  Transmission Date: 20110831
  Serious: Yes (Hospitalization)
  Sender: FDA-Public Use
  Company Number: NL-MEDIMMUNE-MEDI-0012735

PATIENT
  Sex: Male
  Weight: 2.75 kg

DRUGS (2)
  1. SYNAGIS [Suspect]
     Route: 030
     Dates: start: 20110222
  2. CYCLOMETAZOLINE [Concomitant]
     Route: 045
     Dates: start: 20110101

REACTIONS (1)
  - HYPOVENTILATION [None]
